FAERS Safety Report 6524429-0 (Version None)
Quarter: 2010Q1

REPORT INFORMATION
  Report Type: 
  Country: None (occurrence: None)
  Receive Date: 20100104
  Receipt Date: 20091221
  Transmission Date: 20100710
  Serious: Yes (Death)
  Sender: FDA-Public Use
  Company Number: DE-CUBIST-2009S1000578

PATIENT
  Sex: Male

DRUGS (1)
  1. CUBICIN [Suspect]
     Indication: INFECTION
     Route: 042
     Dates: start: 20090101, end: 20090101

REACTIONS (2)
  - HAEMATOLOGICAL MALIGNANCY [None]
  - MALIGNANT NEOPLASM PROGRESSION [None]
